FAERS Safety Report 8413770-2 (Version None)
Quarter: 2012Q2

REPORT INFORMATION
  Report Type: 
  Country: None (occurrence: None)
  Receive Date: 20120605
  Receipt Date: 20120601
  Transmission Date: 20120825
  Serious: Yes (Other)
  Sender: FDA-Public Use
  Company Number: BE-BAYER-2012-030892

PATIENT

DRUGS (1)
  1. BETASERON [Suspect]
     Dosage: UNK
     Dates: end: 20120220

REACTIONS (3)
  - INJECTION SITE REACTION [None]
  - ABSCESS [None]
  - INFLUENZA LIKE ILLNESS [None]
